FAERS Safety Report 13108234 (Version 1)
Quarter: 2017Q1

REPORT INFORMATION
  Report Type: Spontaneous
  Country: US (occurrence: US)
  Receive Date: 20170112
  Receipt Date: 20170112
  Transmission Date: 20170428
  Serious: No
  Sender: FDA-Public Use
  Company Number: US-WATSON-2016-05276

PATIENT
  Sex: Female

DRUGS (1)
  1. RISPERIDONE (WATSON LABORATORIES) [Suspect]
     Active Substance: RISPERIDONE
     Indication: BIPOLAR DISORDER
     Dosage: UNK UNK, UNKNOWN
     Route: 048

REACTIONS (2)
  - Blood prolactin increased [Unknown]
  - Amenorrhoea [Unknown]
